FAERS Safety Report 16992734 (Version 1)
Quarter: 2019Q4

REPORT INFORMATION
  Report Type: Spontaneous
  Country: NL (occurrence: NL)
  Receive Date: 20191105
  Receipt Date: 20191105
  Transmission Date: 20200122
  Serious: Yes (Life-Threatening, Hospitalization)
  Sender: FDA-Public Use
  Company Number: NL-ACCORD-159771

PATIENT
  Age: 38 Year
  Sex: Male

DRUGS (14)
  1. METAMIZOLE SODIUM [Concomitant]
     Active Substance: METAMIZOLE SODIUM
  2. VALPROIC ACID. [Concomitant]
     Active Substance: VALPROIC ACID
  3. PARACETAMOL [Concomitant]
     Active Substance: ACETAMINOPHEN
  4. MORPHINE [Concomitant]
     Active Substance: MORPHINE
  5. CLOBETASOL [Concomitant]
     Active Substance: CLOBETASOL
  6. COLECALCIFEROL [Concomitant]
     Active Substance: CHOLECALCIFEROL
  7. NICOTINE. [Concomitant]
     Active Substance: NICOTINE
  8. NADROPARIN/NADROPARIN CALCIUM [Concomitant]
  9. CIPROFLOXACIN. [Concomitant]
     Active Substance: CIPROFLOXACIN
     Dates: start: 20190920, end: 20190922
  10. BENZYLPENICILLIN [Concomitant]
     Active Substance: PENICILLIN G
  11. DEPAKINE [Concomitant]
     Active Substance: VALPROATE SODIUM
     Dosage: 1DD1
  12. ERGOCALCIFEROL. [Concomitant]
     Active Substance: ERGOCALCIFEROL
     Dosage: ELKE DINSDAG
  13. CLOZAPINE. [Suspect]
     Active Substance: CLOZAPINE
     Indication: SCHIZOPHRENIA
     Dosage: STRENGTH: 100 MG
     Dates: start: 2015
  14. DEXAMFETAMINE/DEXAMFETAMINE PHOSPHATE/DEXAMFETAMINE RESINATE/DEXAMFETAMINE SACCHARATE/DEXAMFETAMINE [Concomitant]
     Dosage: 2DD 10 MG

REACTIONS (1)
  - Embolism [Not Recovered/Not Resolved]

NARRATIVE: CASE EVENT DATE: 20190923
